FAERS Safety Report 20206695 (Version 1)
Quarter: 2021Q4

REPORT INFORMATION
  Report Type: Spontaneous
  Country: US (occurrence: US)
  Receive Date: 20211220
  Receipt Date: 20211220
  Transmission Date: 20220303
  Serious: Yes (Other)
  Sender: FDA-Public Use
  Company Number: US-PFIZER INC-202101739565

PATIENT
  Age: 72 Year
  Sex: Male
  Weight: 109.77 kg

DRUGS (2)
  1. DEPO-MEDROL [Suspect]
     Active Substance: METHYLPREDNISOLONE ACETATE
     Indication: Cyanopsia
     Dosage: INJECTED IN RIGHT THIGH VIA FLUOROSCOPE
     Dates: start: 20211118
  2. KENALOG [Suspect]
     Active Substance: TRIAMCINOLONE ACETONIDE
     Indication: Neuralgia
     Dosage: 40 MG
     Route: 030
     Dates: start: 20211117

REACTIONS (3)
  - Glaucoma [Recovering/Resolving]
  - Off label use [Unknown]
  - Drug effective for unapproved indication [Unknown]
